FAERS Safety Report 8516247 (Version 2)
Quarter: 2014Q4

REPORT INFORMATION
  Report Type: Spontaneous
  Country: US (occurrence: US)
  Receive Date: 20120417
  Receipt Date: 20141226
  Transmission Date: 20150529
  Serious: Yes (Other)
  Sender: FDA-Public Use
  Company Number: US-ASTRAZENECA-2011SE54224

PATIENT
  Sex: Female

DRUGS (5)
  1. NEXIUM [Suspect]
     Active Substance: ESOMEPRAZOLE MAGNESIUM
     Indication: GASTRIC DISORDER
     Route: 048
  2. PREVACID [Concomitant]
     Active Substance: LANSOPRAZOLE
  3. UNSPECIFIED [Concomitant]
     Active Substance: UNSPECIFIED INGREDIENT
  4. NEXIUM [Suspect]
     Active Substance: ESOMEPRAZOLE MAGNESIUM
     Indication: OESOPHAGEAL ULCER
     Route: 048
  5. NEXIUM [Suspect]
     Active Substance: ESOMEPRAZOLE MAGNESIUM
     Indication: GASTROOESOPHAGEAL REFLUX DISEASE
     Route: 048

REACTIONS (16)
  - Feeding disorder [Unknown]
  - Nerve injury [Unknown]
  - Product use issue [Unknown]
  - Renal failure [Unknown]
  - White blood cell count abnormal [Unknown]
  - Cough [Unknown]
  - Oesophageal disorder [Unknown]
  - Vomiting [Unknown]
  - Malaise [Unknown]
  - Loss of consciousness [Unknown]
  - Fall [Unknown]
  - Neck injury [Unknown]
  - Intentional product misuse [Unknown]
  - Dysphagia [Unknown]
  - Abdominal discomfort [Unknown]
  - Anaemia [Unknown]
